FAERS Safety Report 12563327 (Version 2)
Quarter: 2016Q4

REPORT INFORMATION
  Report Type: Report from Study
  Country: AU (occurrence: AU)
  Receive Date: 20160715
  Receipt Date: 20161122
  Transmission Date: 20170207
  Serious: Yes (Hospitalization, Other)
  Sender: FDA-Public Use
  Company Number: AU-REGENERON PHARMACEUTICALS, INC.-2016-19187

PATIENT

DRUGS (1)
  1. EYLEA [Suspect]
     Active Substance: AFLIBERCEPT
     Indication: NEOVASCULAR AGE-RELATED MACULAR DEGENERATION
     Dosage: 2 MG, UNK
     Route: 031
     Dates: start: 20160401

REACTIONS (4)
  - Balance disorder [Recovering/Resolving]
  - Cholecystectomy [Recovering/Resolving]
  - Eye contusion [Recovering/Resolving]
  - Fall [Unknown]

NARRATIVE: CASE EVENT DATE: 20160702
